FAERS Safety Report 8976687 (Version 3)
Quarter: 2013Q1

REPORT INFORMATION
  Report Type: Spontaneous
  Country: JP (occurrence: JP)
  Receive Date: 20121220
  Receipt Date: 20130211
  Transmission Date: 20140127
  Serious: Yes (Hospitalization)
  Sender: FDA-Public Use
  Company Number: JP-ASTRAZENECA-2012SE93681

PATIENT
  Age: 77 Year
  Sex: Female
  Weight: 49 kg

DRUGS (17)
  1. NEXIUM [Suspect]
     Indication: GASTROOESOPHAGEAL REFLUX DISEASE
     Dosage: 20 MG AFTER BREAKFASTS
     Route: 048
     Dates: start: 20121114, end: 20121204
  2. VENILON-I [Suspect]
     Indication: HYPOGAMMAGLOBULINAEMIA
     Route: 065
  3. BIOTIN [Concomitant]
     Indication: ECZEMA
     Dosage: 4 MG ,AFTER BREAKFASTS AND EVENING MEALS
     Route: 048
  4. MOHRUS TAPE [Concomitant]
     Indication: BACK PAIN
     Dosage: 480 MG EVERY DAY, AT PAIN SITES
     Route: 062
  5. BAYASPIRIN [Concomitant]
     Indication: ANGINA PECTORIS
     Dosage: 100 MG, AFTER BREAKFASTS
     Route: 048
  6. PREDONINE [Concomitant]
     Indication: MYASTHENIA GRAVIS
     Route: 048
     Dates: start: 20121129
  7. PREDONINE [Concomitant]
     Indication: MYASTHENIA GRAVIS
     Dosage: 25 MG, EVERY OTHER DAY, AFTER BREAKFASTS
     Route: 048
     Dates: start: 20121207
  8. NEORAL [Concomitant]
     Indication: MYASTHENIA GRAVIS
     Dosage: 50 MG, AFTER BREAKFASTS AND EVENING MEALS
     Route: 048
  9. JUVELA [Concomitant]
     Indication: PERIPHERAL VASCULAR DISORDER
     Dosage: 150MG, THREE TIMES A DAY (AFTER EVERY MEAL)
     Route: 048
  10. MAGMITT [Concomitant]
     Indication: CONSTIPATION
     Dosage: 1320 MG, AFTER BREAKFASTS AND EVENING MEALS
     Route: 048
  11. URSO [Concomitant]
     Indication: CHOLESTASIS
     Dosage: 600 MG, THEE TIMES A DAY (AFTER EVERY MEAL)
     Route: 048
  12. NAUZELIN [Concomitant]
     Indication: GASTROOESOPHAGEAL REFLUX DISEASE
     Dosage: 30 MG, AFTER EVERY MEAL
     Route: 048
  13. BLOPRESS [Concomitant]
     Indication: HYPERTENSION
     Dosage: 8 MG, AFTER BREAKFASTS
     Route: 048
  14. CALCIUM LACTATE HYDRATE [Concomitant]
     Indication: OSTEOPOROSIS
     Dosage: 2 MG, THREE TIMES A DAY (AFTER EVERY MEAL)
     Route: 048
  15. BONOTEO [Concomitant]
     Indication: OSTEOPOROSIS
     Dosage: 50MG, EVERY DAY UPON WAKING UP
     Route: 048
  16. RIKKUNSHITO [Concomitant]
     Indication: GASTROOESOPHAGEAL REFLUX DISEASE
     Dosage: 7.5 MG, THREE TIMES A DAY, BEFORE EVERY MEAL
     Route: 048
  17. NOVOLIN R [Concomitant]
     Indication: DIABETES MELLITUS
     Dosage: MORNINGS 14, AFTERNOONS 16 AND EVENINGS 8
     Route: 065

REACTIONS (1)
  - Interstitial lung disease [Recovering/Resolving]
